FAERS Safety Report 18504927 (Version 1)
Quarter: 2020Q4

REPORT INFORMATION
  Report Type: Spontaneous
  Country: US (occurrence: US)
  Receive Date: 20201115
  Receipt Date: 20201115
  Transmission Date: 20210114
  Serious: Yes (Hospitalization, Other)
  Sender: FDA-Public Use
  Company Number: US-AUROBINDO-AUR-APL-2020-056147

PATIENT
  Age: 71 Year
  Sex: Male

DRUGS (1)
  1. ERTAPENEM FOR INJECTION [Suspect]
     Active Substance: ERTAPENEM
     Indication: UROSEPSIS
     Dosage: UNK
     Route: 042

REACTIONS (6)
  - Dyskinesia [Recovered/Resolved]
  - Disorientation [Recovered/Resolved]
  - Chorea [Recovered/Resolved]
  - Tremor [Recovered/Resolved]
  - Hallucination, visual [Recovered/Resolved]
  - Dysarthria [Recovered/Resolved]
